FAERS Safety Report 8492866 (Version 3)
Quarter: 2013Q3

REPORT INFORMATION
  Report Type: Spontaneous
  Country: FI (occurrence: None)
  Receive Date: 20120327
  Receipt Date: 20130813
  Transmission Date: 20140515
  Serious: Yes (Hospitalization, Other)
  Sender: FDA-Public Use
  Company Number: FI-024430

PATIENT
  Age: 72 Year
  Sex: Male

DRUGS (6)
  1. CHLORAMBUCIL [Suspect]
     Indication: CHRONIC LYMPHOCYTIC LEUKAEMIA
     Dosage: FORM UNKNOWN (20 MILLIGRAM, 1 IN 1 DAYS), ORAL
     Route: 048
     Dates: start: 20110131
  2. RITUXIMAB [Suspect]
     Indication: CHRONIC LYMPHOCYTIC LEUKAEMIA
     Dosage: FORM UNKNOWN (1050 MILLIGRAM, 1 IN  1 MONTHS), INTRAVENOUS (NOT OTHERWISE SPECIFIED)
     Route: 042
     Dates: start: 20110131
  3. ASPIRIN (ACETYLSALICYLIC ACID) [Concomitant]
  4. METOPROLOL TARTRATE [Concomitant]
  5. AMILORIDE/HYDROCHLOROTHIAZIDE (AMILORIDE) [Concomitant]
  6. SIMVASTATIN [Concomitant]

REACTIONS (5)
  - Sinusitis [None]
  - Facial pain [None]
  - Haemorrhage [None]
  - Pyrexia [None]
  - Acute sinusitis [None]
